FAERS Safety Report 14123584 (Version 1)
Quarter: 2017Q4

REPORT INFORMATION
  Report Type: Spontaneous
  Country: US (occurrence: US)
  Receive Date: 20171025
  Receipt Date: 20171025
  Transmission Date: 20180321
  Serious: No
  Sender: FDA-Public Use
  Company Number: US-KERYX BIOPHARMACEUTICALS, INC.-2017US002713

PATIENT
  Age: 63 Year
  Sex: Male
  Weight: 79 kg

DRUGS (5)
  1. FERRLECIT                          /00023541/ [Concomitant]
     Indication: PRODUCT USED FOR UNKNOWN INDICATION
     Dosage: 62.5 MG, EVERY WED
     Route: 042
     Dates: start: 20161116, end: 20170309
  2. AURYXIA [Suspect]
     Active Substance: TETRAFERRIC TRICITRATE DECAHYDRATE
     Indication: BLOOD PHOSPHORUS INCREASED
     Dosage: 2 G (2 TABLETS), TID WITH MEALS
     Route: 048
     Dates: start: 20170224
  3. HERBAL EXTRACT NOS [Concomitant]
     Active Substance: HERBALS
     Indication: PRODUCT USED FOR UNKNOWN INDICATION
     Dosage: UNK
  4. EPOGEN [Concomitant]
     Active Substance: ERYTHROPOIETIN
     Indication: PRODUCT USED FOR UNKNOWN INDICATION
     Dosage: 2200 UNITS/ML, 3 TIMES/WK
     Route: 042
     Dates: start: 20170310
  5. ZEMPLAR [Concomitant]
     Active Substance: PARICALCITOL
     Indication: PRODUCT USED FOR UNKNOWN INDICATION
     Dosage: 5 MICRO-G, 3 TIMES/WK
     Route: 042
     Dates: start: 20170307

REACTIONS (1)
  - Rash pruritic [Recovered/Resolved]

NARRATIVE: CASE EVENT DATE: 20170331
